FAERS Safety Report 24537088 (Version 2)
Quarter: 2024Q4

REPORT INFORMATION
  Report Type: Spontaneous
  Country: US (occurrence: US)
  Receive Date: 20241022
  Receipt Date: 20241218
  Transmission Date: 20250115
  Serious: No
  Sender: SANOFI AVENTIS
  Company Number: US-SA-2024SA299507

PATIENT
  Sex: Female

DRUGS (3)
  1. DUPIXENT [Suspect]
     Active Substance: DUPILUMAB
     Indication: Asthma
     Dosage: 300 MG, QOW
     Route: 058
     Dates: start: 20240918
  2. NUCALA [Concomitant]
     Active Substance: MEPOLIZUMAB
  3. NUCALA [Concomitant]
     Active Substance: MEPOLIZUMAB

REACTIONS (6)
  - Injection site swelling [Unknown]
  - Device defective [Unknown]
  - Asthma [Unknown]
  - Dysphonia [Unknown]
  - Sensitive skin [Unknown]
  - Condition aggravated [Unknown]

NARRATIVE: CASE EVENT DATE: 20240101
